FAERS Safety Report 13770819 (Version 1)
Quarter: 2017Q3

REPORT INFORMATION
  Report Type: Report from Study
  Country: CA (occurrence: CA)
  Receive Date: 20170720
  Receipt Date: 20170720
  Transmission Date: 20171127
  Serious: Yes (Other)
  Sender: FDA-Public Use
  Company Number: PHHY2017CA009308

PATIENT
  Sex: Female

DRUGS (1)
  1. GILENYA [Suspect]
     Active Substance: FINGOLIMOD HYDROCHLORIDE
     Indication: PRODUCT USED FOR UNKNOWN INDICATION
     Dosage: UNK
     Route: 048
     Dates: start: 20160314

REACTIONS (5)
  - Hyperhidrosis [Unknown]
  - Feeling hot [Unknown]
  - Cervical vertebral fracture [Not Recovered/Not Resolved]
  - White blood cell count decreased [Unknown]
  - Spinal pain [Not Recovered/Not Resolved]
